FAERS Safety Report 9788303 (Version 1)
Quarter: 2013Q4

REPORT INFORMATION
  Report Type: Spontaneous
  Country: US (occurrence: US)
  Receive Date: 20131230
  Receipt Date: 20131230
  Transmission Date: 20140711
  Serious: No
  Sender: FDA-Public Use
  Company Number: US-PFIZER INC-2013372484

PATIENT
  Age: 28 Year
  Sex: Male

DRUGS (1)
  1. CELEBREX [Suspect]
     Dosage: 200 MG, 1X/DAY
     Route: 048

REACTIONS (2)
  - Product quality issue [Unknown]
  - Drug ineffective [Unknown]
